FAERS Safety Report 10899691 (Version 2)
Quarter: 2015Q1

REPORT INFORMATION
  Report Type: Spontaneous
  Country: CL (occurrence: CL)
  Receive Date: 20150309
  Receipt Date: 20150320
  Transmission Date: 20150721
  Serious: Yes (Hospitalization)
  Sender: FDA-Public Use
  Company Number: CL-BIOMARINAP-CL-2015-105708

PATIENT
  Sex: Female
  Weight: 27 kg

DRUGS (1)
  1. NAGLAZYME [Suspect]
     Active Substance: GALSULFASE
     Indication: MUCOPOLYSACCHARIDOSIS VI
     Dosage: 25 MG, QW
     Route: 042
     Dates: start: 20130807

REACTIONS (4)
  - Intestinal obstruction [Recovering/Resolving]
  - Skin lesion [Unknown]
  - Abdominal hernia [Recovering/Resolving]
  - Drug hypersensitivity [None]
